FAERS Safety Report 4639714-7 (Version None)
Quarter: 2005Q2

REPORT INFORMATION
  Report Type: 
  Country: None (occurrence: None)
  Receive Date: 20050328
  Receipt Date: 20041222
  Transmission Date: 20051028
  Serious: No
  Sender: FDA-Public Use
  Company Number: USA041286793

PATIENT
  Age: 19 Year
  Sex: Female
  Weight: 82 kg

DRUGS (1)
  1. STRATTERA [Suspect]
     Dates: start: 20041221

REACTIONS (3)
  - ABNORMAL DREAMS [None]
  - INSOMNIA [None]
  - SLEEP TALKING [None]
